FAERS Safety Report 6311724-3 (Version None)
Quarter: 2009Q3

REPORT INFORMATION
  Report Type: 
  Country: None (occurrence: None)
  Receive Date: 20090813
  Receipt Date: 20090813
  Transmission Date: 20100115
  Serious: Yes (Life-Threatening, Hospitalization, Disabling)
  Sender: FDA-Public Use
  Company Number: None

PATIENT
  Sex: Male
  Weight: 61.2356 kg

DRUGS (1)
  1. AMBIEN [Suspect]
     Indication: SLEEP DISORDER
     Dosage: 10 MG 1 - PER NIGHT
     Dates: start: 20090624

REACTIONS (9)
  - AMNESIA [None]
  - DECREASED APPETITE [None]
  - DIARRHOEA [None]
  - HALLUCINATION [None]
  - INSOMNIA [None]
  - IRRITABILITY [None]
  - PHYSICAL ABUSE [None]
  - SUICIDAL IDEATION [None]
  - VERBAL ABUSE [None]
